FAERS Safety Report 14958643 (Version 1)
Quarter: 2018Q2

REPORT INFORMATION
  Report Type: Spontaneous
  Country: AU (occurrence: AU)
  Receive Date: 20180531
  Receipt Date: 20180531
  Transmission Date: 20180711
  Serious: Yes (Life-Threatening, Other)
  Sender: FDA-Public Use
  Company Number: AU-GILEAD-2018-0341089

PATIENT
  Age: 61 Year
  Sex: Male

DRUGS (8)
  1. MAXIDEX [Concomitant]
     Active Substance: DEXAMETHASONE
  2. SOMAC [Concomitant]
     Active Substance: PANTOPRAZOLE SODIUM
  3. OXYCONTIN [Concomitant]
     Active Substance: OXYCODONE HYDROCHLORIDE
  4. HARVONI [Suspect]
     Active Substance: LEDIPASVIR\SOFOSBUVIR
     Indication: HEPATITIS C
     Dosage: UNK
     Route: 065
     Dates: start: 20170616, end: 20170908
  5. PROPANOLOL                         /00030001/ [Concomitant]
     Active Substance: PROPRANOLOL HYDROCHLORIDE
  6. NOPAIN FORTE [Concomitant]
  7. LYRICA [Concomitant]
     Active Substance: PREGABALIN
  8. ZEPATIER [Concomitant]
     Active Substance: ELBASVIR\GRAZOPREVIR
     Dosage: UNK
     Dates: start: 20180408, end: 20180417

REACTIONS (3)
  - Hepatocellular carcinoma [Unknown]
  - Hepatitis C [Unknown]
  - Drug ineffective [Unknown]
